FAERS Safety Report 4846728-0 (Version None)
Quarter: 2005Q4

REPORT INFORMATION
  Report Type: 
  Country: None (occurrence: None)
  Receive Date: 20051206
  Receipt Date: 20051122
  Transmission Date: 20060501
  Serious: Yes (Hospitalization)
  Sender: FDA-Public Use
  Company Number: NO-MERCK-0511NOR00034

PATIENT
  Age: 74 Year
  Sex: Female

DRUGS (9)
  1. VIOXX [Suspect]
     Indication: OSTEOARTHRITIS
     Route: 048
     Dates: start: 20000401, end: 20040901
  2. ACETAMINOPHEN AND CODEINE PHOSPHATE [Concomitant]
     Route: 065
     Dates: start: 19910101
  3. NABUMETONE [Concomitant]
     Route: 065
     Dates: start: 19960101
  4. ETIDRONATE DISODIUM [Concomitant]
     Indication: OSTEOPOROSIS
     Route: 065
     Dates: start: 19980201
  5. VALSARTAN [Concomitant]
     Indication: HYPERTENSION
     Route: 065
     Dates: start: 19990423
  6. ALBUTEROL SULFATE [Concomitant]
     Indication: ASTHMA
     Route: 065
     Dates: start: 19991101
  7. ZOPICLONE [Concomitant]
     Route: 065
     Dates: start: 19991217
  8. DIAZEPAM [Concomitant]
     Indication: PAIN
     Route: 065
     Dates: start: 19921120
  9. FLUTICASONE PROPIONATE [Concomitant]
     Indication: ASTHMA
     Route: 065
     Dates: start: 19991118

REACTIONS (4)
  - ATRIAL FIBRILLATION [None]
  - ATRIOVENTRICULAR BLOCK [None]
  - CARDIAC FAILURE [None]
  - TACHYCARDIA [None]
